FAERS Safety Report 6484417-X (Version None)
Quarter: 2009Q4

REPORT INFORMATION
  Report Type: 
  Country: None (occurrence: None)
  Receive Date: 20091209
  Receipt Date: 20091127
  Transmission Date: 20100525
  Serious: Yes (Hospitalization)
  Sender: FDA-Public Use
  Company Number: DE-SANOFI-AVENTIS-F04200900065

PATIENT
  Age: 58 Year
  Sex: Female

DRUGS (8)
  1. OXALIPLATIN [Suspect]
     Route: 041
     Dates: start: 20090518, end: 20090518
  2. OXALIPLATIN [Suspect]
     Indication: DISEASE PROGRESSION
     Route: 041
     Dates: start: 20090518, end: 20090518
  3. OXALIPLATIN [Suspect]
     Route: 041
     Dates: start: 20090101, end: 20090101
  4. OXALIPLATIN [Suspect]
     Route: 041
     Dates: start: 20090101, end: 20090101
  5. FLUOROURACIL [Suspect]
     Route: 040
  6. FLUOROURACIL [Suspect]
     Indication: DISEASE PROGRESSION
     Route: 040
  7. CAPECITABINE [Suspect]
     Route: 048
     Dates: start: 20090518
  8. CAPECITABINE [Suspect]
     Indication: DISEASE PROGRESSION
     Route: 048
     Dates: start: 20090518

REACTIONS (1)
  - GASTRITIS [None]
